FAERS Safety Report 10658320 (Version 1)
Quarter: 2014Q4

REPORT INFORMATION
  Report Type: Spontaneous
  Country: FR (occurrence: FR)
  Receive Date: 20141217
  Receipt Date: 20141217
  Transmission Date: 20150529
  Serious: Yes (Hospitalization)
  Sender: FDA-Public Use
  Company Number: FR-SA-2014SA170412

PATIENT
  Age: 85 Year
  Sex: Female

DRUGS (11)
  1. PREVISCAN [Concomitant]
     Active Substance: FLUINDIONE
     Dosage: RELAY WITH FLUINDIONE (PREVISCAN: 1/2 TABLET, EVERY TWO DAY)
  2. IXPRIM [Concomitant]
     Active Substance: ACETAMINOPHEN\TRAMADOL HYDROCHLORIDE
  3. ACTISKENAN [Concomitant]
     Active Substance: MORPHINE SULFATE
  4. SERETIDE [Concomitant]
     Active Substance: FLUTICASONE FUROATE\SALMETEROL XINAFOATE
  5. IMOVANE [Concomitant]
     Active Substance: ZOPICLONE
  6. LOVENOX [Suspect]
     Active Substance: ENOXAPARIN SODIUM
     Indication: DRUG THERAPY
     Route: 058
     Dates: start: 20141022, end: 20141104
  7. BISOPROLOL FUMARATE. [Concomitant]
     Active Substance: BISOPROLOL FUMARATE
  8. GLICLAZIDE [Concomitant]
     Active Substance: GLICLAZIDE
  9. CORDARONE [Concomitant]
     Active Substance: AMIODARONE HYDROCHLORIDE
  10. DOLIPRANE [Concomitant]
     Active Substance: ACETAMINOPHEN
  11. PANTOPRAZOLE [Concomitant]
     Active Substance: PANTOPRAZOLE SODIUM

REACTIONS (2)
  - Arterial thrombosis [Recovered/Resolved]
  - Heparin-induced thrombocytopenia [Recovered/Resolved]

NARRATIVE: CASE EVENT DATE: 20141104
